FAERS Safety Report 5763712-3 (Version None)
Quarter: 2008Q2

REPORT INFORMATION
  Report Type: 
  Country: None (occurrence: None)
  Receive Date: 20080610
  Receipt Date: 20080530
  Transmission Date: 20081010
  Serious: Yes (Hospitalization)
  Sender: FDA-Public Use
  Company Number: CA-AMGEN-QUU282185

PATIENT
  Sex: Female
  Weight: 79.5 kg

DRUGS (6)
  1. NEUPOGEN [Suspect]
     Indication: CHEMOTHERAPY
     Route: 058
     Dates: start: 20070419
  2. ADRIAMYCIN PFS [Suspect]
     Dates: start: 20070417
  3. CYCLOPHOSPHAMIDE [Suspect]
     Dates: start: 20070417
  4. UNSPECIFIED ANTIEMETIC [Concomitant]
  5. NORVASC [Concomitant]
  6. LIPITOR [Concomitant]

REACTIONS (4)
  - LOSS OF CONSCIOUSNESS [None]
  - MYOCARDIAL INFARCTION [None]
  - THROMBOSIS [None]
  - UPPER GASTROINTESTINAL HAEMORRHAGE [None]
